FAERS Safety Report 4272580-0 (Version None)
Quarter: 2004Q1

REPORT INFORMATION
  Report Type: 
  Country: None (occurrence: None)
  Receive Date: 20040114
  Receipt Date: 20040114
  Transmission Date: 20041129
  Serious: No
  Sender: FDA-Public Use
  Company Number: None

PATIENT
  Sex: Male
  Weight: 106.1417 kg

DRUGS (7)
  1. CLOZAPINE [Suspect]
     Indication: SCHIZOPHRENIA
     Dosage: 50 MG QAM ORAL
     Route: 048
     Dates: start: 20031016, end: 20031202
  2. CLOZAPINE [Suspect]
     Dosage: 100 MG HS ORAL
     Route: 048
     Dates: start: 20031016, end: 20031202
  3. HALOPERIDOL [Concomitant]
  4. QUETIAPINE [Concomitant]
  5. DOCUSATE [Concomitant]
  6. LACTULOSE [Concomitant]
  7. PSYLLIUM [Concomitant]

REACTIONS (1)
  - NEUTROPHIL COUNT DECREASED [None]
